FAERS Safety Report 4274411-1 (Version None)
Quarter: 2004Q1

REPORT INFORMATION
  Report Type: 
  Country: None (occurrence: None)
  Receive Date: 20040120
  Receipt Date: 20040116
  Transmission Date: 20041129
  Serious: Yes (Disabling)
  Sender: FDA-Public Use
  Company Number: WAES 0401USA01155

PATIENT
  Age: 78 Year
  Sex: Male

DRUGS (1)
  1. ZOCOR [Suspect]
     Indication: BLOOD CHOLESTEROL INCREASED
     Route: 048
     Dates: start: 19970101, end: 19970101

REACTIONS (5)
  - DYSSTASIA [None]
  - FALL [None]
  - MUSCULAR WEAKNESS [None]
  - MYOSITIS [None]
  - NERVOUS SYSTEM DISORDER [None]
